FAERS Safety Report 12636500 (Version 2)
Quarter: 2016Q3

REPORT INFORMATION
  Report Type: Spontaneous
  Country: US (occurrence: US)
  Receive Date: 20160809
  Receipt Date: 20160831
  Transmission Date: 20161109
  Serious: No
  Sender: FDA-Public Use
  Company Number: US-BAYER-2016-148068

PATIENT
  Age: 89 Year
  Sex: Female
  Weight: 74.38 kg

DRUGS (1)
  1. MIRALAX [Suspect]
     Active Substance: POLYETHYLENE GLYCOL 3350
     Indication: CONSTIPATION
     Dosage: UNK, QD
     Route: 048
     Dates: end: 201608

REACTIONS (4)
  - Wrong technique in product usage process [None]
  - Flatulence [Not Recovered/Not Resolved]
  - Product use issue [None]
  - Flatulence [Recovered/Resolved]

NARRATIVE: CASE EVENT DATE: 201608
